FAERS Safety Report 6007353-1 (Version None)
Quarter: 2008Q4

REPORT INFORMATION
  Report Type: 
  Country: None (occurrence: None)
  Receive Date: 20081217
  Receipt Date: 20080409
  Transmission Date: 20090506
  Serious: Yes (Hospitalization)
  Sender: FDA-Public Use
  Company Number: US-ASTRAZENECA-2008UW05310

PATIENT
  Age: 18 Year
  Sex: Male

DRUGS (7)
  1. CRESTOR [Suspect]
     Route: 048
  2. CRESTOR [Suspect]
     Route: 048
     Dates: start: 20070919
  3. CRESTOR [Suspect]
     Route: 048
  4. ZETIA [Concomitant]
     Dates: start: 20060101
  5. LIPITOR [Concomitant]
  6. LIPITOR [Concomitant]
  7. LIPITOR [Concomitant]

REACTIONS (1)
  - RHABDOMYOLYSIS [None]
